FAERS Safety Report 15069807 (Version 1)
Quarter: 2018Q2

REPORT INFORMATION
  Report Type: Spontaneous
  Country: US (occurrence: US)
  Receive Date: 20180626
  Receipt Date: 20180626
  Transmission Date: 20180711
  Serious: No
  Sender: FDA-Public Use
  Company Number: US-AMGEN-USASP2014034807

PATIENT
  Age: 62 Year
  Sex: Female

DRUGS (3)
  1. NEULASTA [Suspect]
     Active Substance: PEGFILGRASTIM
     Indication: PRODUCT USED FOR UNKNOWN INDICATION
     Dosage: UNK UNK, 24 HOURS POST CHEMO
     Route: 065
  2. GEMZAR [Concomitant]
     Active Substance: GEMCITABINE HYDROCHLORIDE
     Indication: UTERINE CANCER
     Dosage: ONCE EVERY TWO WEEKS
  3. CISPLATIN. [Concomitant]
     Active Substance: CISPLATIN
     Indication: UTERINE CANCER
     Dosage: ONCE EVERY TWO WEEKS

REACTIONS (2)
  - Pain [Unknown]
  - Arthralgia [Unknown]
